FAERS Safety Report 9080821 (Version 1)
Quarter: 2013Q1

REPORT INFORMATION
  Report Type: Report from Study
  Country: US (occurrence: US)
  Receive Date: 20130130
  Receipt Date: 20130130
  Transmission Date: 20140127
  Serious: No
  Sender: FDA-Public Use
  Company Number: US-ABBOTT-12P-163-0958352-00

PATIENT
  Age: 41 Year
  Sex: Female

DRUGS (2)
  1. HUMIRA 40 MG/0.8 ML PEN [Suspect]
     Indication: CROHN^S DISEASE
     Dates: start: 20120312
  2. IRON PILL [Concomitant]
     Indication: PRODUCT USED FOR UNKNOWN INDICATION
     Dosage: DAILY

REACTIONS (11)
  - Sneezing [Unknown]
  - Rhinorrhoea [Unknown]
  - Eye pruritus [Unknown]
  - Throat irritation [Unknown]
  - Nasal discomfort [Unknown]
  - Erythema [Recovering/Resolving]
  - Hypersensitivity [Not Recovered/Not Resolved]
  - Injection site reaction [Recovering/Resolving]
  - Injection site warmth [Recovering/Resolving]
  - Injection site swelling [Recovering/Resolving]
  - Injection site erythema [Recovering/Resolving]
